FAERS Safety Report 9015272 (Version 1)
Quarter: 2013Q1

REPORT INFORMATION
  Report Type: Spontaneous
  Country: US (occurrence: None)
  Receive Date: 20130109
  Receipt Date: 20130109
  Transmission Date: 20140127
  Serious: No
  Sender: FDA-Public Use
  Company Number: None

PATIENT
  Age: 50 Year
  Sex: Female

DRUGS (1)
  1. TEMODAR [Suspect]
     Indication: GLIOBLASTOMA MULTIFORME
     Dosage: 200MG X 5D Q28DAYS, BY MOUTH
     Route: 048
     Dates: start: 201108, end: 201301

REACTIONS (6)
  - Nausea [None]
  - Vomiting [None]
  - Abdominal pain upper [None]
  - Paraesthesia [None]
  - Chest pain [None]
  - Dyspnoea [None]
